FAERS Safety Report 13049272 (Version 1)
Quarter: 2016Q4

REPORT INFORMATION
  Report Type: Spontaneous
  Country: US (occurrence: US)
  Receive Date: 20161221
  Receipt Date: 20161221
  Transmission Date: 20170207
  Serious: Yes (Other)
  Sender: FDA-Public Use
  Company Number: US-SA-2016SA227904

PATIENT
  Age: 44 Year
  Sex: Female

DRUGS (2)
  1. DEXAMETHASONE. [Concomitant]
     Active Substance: DEXAMETHASONE
     Indication: DEXAMETHASONE SUPPRESSION TEST
  2. MELATONIN [Suspect]
     Active Substance: MELATONIN
     Route: 065

REACTIONS (2)
  - Blood cortisol increased [Unknown]
  - Cushing^s syndrome [Unknown]

NARRATIVE: CASE EVENT DATE: 2014
